FAERS Safety Report 4709212-0 (Version None)
Quarter: 2005Q3

REPORT INFORMATION
  Report Type: 
  Country: None (occurrence: None)
  Receive Date: 20050707
  Receipt Date: 20050707
  Transmission Date: 20060218
  Serious: Yes (Hospitalization, Other)
  Sender: FDA-Public Use
  Company Number: None

PATIENT
  Sex: Male
  Weight: 61.23 kg

DRUGS (2)
  1. CISPLATIN [Suspect]
     Dosage: 100 MG/M2 ON DAYS 1, 22 AND 43
     Dates: start: 20050606
  2. RADIATION [Suspect]
     Dosage: 70 GY/35 FX FOR SEVEN WEEKS

REACTIONS (4)
  - APHAGIA [None]
  - NAUSEA [None]
  - VOMITING [None]
  - WEIGHT DECREASED [None]
